FAERS Safety Report 5059829-1 (Version None)
Quarter: 2006Q3

REPORT INFORMATION
  Report Type: 
  Country: None (occurrence: None)
  Receive Date: 20060724
  Receipt Date: 20060712
  Transmission Date: 20061208
  Serious: Yes (Hospitalization)
  Sender: FDA-Public Use
  Company Number: HK-JNJFOC-20060600003

PATIENT
  Sex: Male

DRUGS (4)
  1. RISPERDAL [Suspect]
     Route: 048
  2. RISPERDAL [Suspect]
     Indication: DRUG USE FOR UNKNOWN INDICATION
     Route: 048
  3. CLONAZEPAM [Concomitant]
     Route: 048
  4. OLANZAPINE [Concomitant]
     Dosage: MORE THAN 10 YEARS
     Route: 048

REACTIONS (1)
  - PERICARDIAL EFFUSION [None]
